FAERS Safety Report 6750019-0 (Version None)
Quarter: 2010Q2

REPORT INFORMATION
  Report Type: 
  Country: None (occurrence: None)
  Receive Date: 20100601
  Receipt Date: 20091214
  Transmission Date: 20101027
  Serious: Yes (Death)
  Sender: FDA-Public Use
  Company Number: GXKR2009DK13565

PATIENT
  Sex: Female

DRUGS (2)
  1. VERAPAMIL (NGX) [Suspect]
     Route: 065
     Dates: start: 20070612
  2. SELO-ZOK [Interacting]
     Indication: ATRIAL FIBRILLATION
     Route: 065
     Dates: start: 20070612

REACTIONS (2)
  - CARDIAC ARREST [None]
  - CIRCULATORY COLLAPSE [None]
